FAERS Safety Report 24455549 (Version 2)
Quarter: 2024Q4

REPORT INFORMATION
  Report Type: Report from Study
  Country: CA (occurrence: CA)
  Receive Date: 20241017
  Receipt Date: 20241018
  Transmission Date: 20250115
  Serious: No
  Sender: ROCHE
  Company Number: CA-ROCHE-3489698

PATIENT
  Age: 34 Year
  Sex: Female

DRUGS (24)
  1. RITUXAN [Suspect]
     Active Substance: RITUXIMAB
     Indication: Anti-neutrophil cytoplasmic antibody positive vasculitis
     Dosage: FREQUENCY TEXT:DAY 1, 15
     Route: 042
     Dates: start: 20160225
  2. RITUXAN [Suspect]
     Active Substance: RITUXIMAB
     Indication: Granulomatosis with polyangiitis
     Route: 042
     Dates: start: 20181210
  3. ACETAMINOPHEN [Concomitant]
     Active Substance: ACETAMINOPHEN
     Route: 048
     Dates: start: 20160819
  4. ACCUTANE [Concomitant]
     Active Substance: ISOTRETINOIN
  5. CALCIUM [Concomitant]
     Active Substance: CALCIUM
  6. DIPHENHYDRAMINE [Concomitant]
     Active Substance: DIPHENHYDRAMINE
     Route: 048
     Dates: start: 20160229
  7. ENALAPRIL [Concomitant]
     Active Substance: ENALAPRIL
  8. LIPITOR [Concomitant]
     Active Substance: ATORVASTATIN CALCIUM
  9. METHYLPREDNISOLONE [Concomitant]
     Active Substance: METHYLPREDNISOLONE
     Route: 042
     Dates: start: 20160225
  10. MYFORTIC [Concomitant]
     Active Substance: MYCOPHENOLATE SODIUM
  11. NASONEX [Concomitant]
     Active Substance: MOMETASONE FUROATE
  12. NEXIUM [Concomitant]
     Active Substance: ESOMEPRAZOLE MAGNESIUM
  13. NIACINAMIDE [Concomitant]
     Active Substance: NIACINAMIDE
  14. OXYCODONE [Concomitant]
     Active Substance: OXYCODONE
  15. OXYCODONE [Concomitant]
     Active Substance: OXYCODONE
  16. PLAQUENIL [Concomitant]
     Active Substance: HYDROXYCHLOROQUINE SULFATE
  17. PREDNISONE [Concomitant]
     Active Substance: PREDNISONE
  18. POLYETHYLENE GLYCOL 3350 [Concomitant]
     Active Substance: POLYETHYLENE GLYCOL 3350
  19. RUPATADINE FUMARATE [Concomitant]
     Active Substance: RUPATADINE FUMARATE
  20. SERTRALINE [Concomitant]
     Active Substance: SERTRALINE HYDROCHLORIDE
  21. SULFATRIM [Concomitant]
     Active Substance: SULFAMETHOXAZOLE\TRIMETHOPRIM
  22. TRAZODONE [Concomitant]
     Active Substance: TRAZODONE HYDROCHLORIDE
  23. TYLENOL [Concomitant]
     Active Substance: ACETAMINOPHEN
  24. ZOLOFT [Concomitant]
     Active Substance: SERTRALINE HYDROCHLORIDE

REACTIONS (1)
  - COVID-19 [Unknown]

NARRATIVE: CASE EVENT DATE: 20240106
